FAERS Safety Report 4434748-X (Version None)
Quarter: 2004Q3

REPORT INFORMATION
  Report Type: 
  Country: None (occurrence: None)
  Receive Date: 20040827
  Receipt Date: 20040707
  Transmission Date: 20050211
  Serious: No
  Sender: FDA-Public Use
  Company Number: US-BRISTOL-MYERS SQUIBB COMPANY-12639167

PATIENT
  Age: 65 Year
  Sex: Female

DRUGS (14)
  1. DEFINITY [Suspect]
     Indication: ECHOCARDIOGRAM
     Dosage: DOSAGE: 1 VIAL DILUTED IN 10CC NS TRANSFUSED IN LESS THAN 3 MINUTES.
     Route: 042
     Dates: start: 20040408
  2. LASIX [Concomitant]
  3. ZYLOPRIM [Concomitant]
  4. PREMARIN [Concomitant]
  5. PEPCID [Concomitant]
  6. LANTUS [Concomitant]
  7. HUMALOG [Concomitant]
  8. ALDACTONE [Concomitant]
  9. LOPRESSOR [Concomitant]
  10. ALLEGRA [Concomitant]
  11. ZAROXOLYN [Concomitant]
  12. LORTAB [Concomitant]
  13. PROTONIX [Concomitant]
  14. MORPHINE [Concomitant]

REACTIONS (1)
  - CHEST PAIN [None]
